FAERS Safety Report 4307608-2 (Version None)
Quarter: 2004Q1

REPORT INFORMATION
  Report Type: 
  Country: None (occurrence: None)
  Receive Date: 20040227
  Receipt Date: 20040227
  Transmission Date: 20041129
  Serious: Yes (Hospitalization)
  Sender: FDA-Public Use
  Company Number: None

PATIENT
  Sex: Male
  Weight: 86 kg

DRUGS (5)
  1. TAXOTERE [Suspect]
     Indication: PROSTATE CANCER
     Dosage: 40 MG/M2 Q WEEK INTRAVENOUS
     Route: 042
     Dates: start: 20031210, end: 20040218
  2. EMCYT [Suspect]
     Indication: PROSTATE CANCER
     Dosage: 140 MG BID X 4 DA ORAL
     Route: 048
     Dates: start: 20031210, end: 20040221
  3. DEXAMETHASONE [Concomitant]
  4. TAXOTERE [Concomitant]
  5. COUMADIN [Concomitant]

REACTIONS (2)
  - PNEUMONIA [None]
  - PYREXIA [None]
